FAERS Safety Report 11267084 (Version 1)
Quarter: 2015Q3

REPORT INFORMATION
  Report Type: Spontaneous
  Country: US (occurrence: US)
  Receive Date: 20150713
  Receipt Date: 20150713
  Transmission Date: 20151125
  Serious: No
  Sender: FDA-Public Use
  Company Number: US-PFIZER INC-2015227770

PATIENT
  Sex: Female

DRUGS (9)
  1. KEFLEX [Suspect]
     Active Substance: CEPHALEXIN
  2. ACIPHEX [Suspect]
     Active Substance: RABEPRAZOLE SODIUM
  3. XARELTO [Suspect]
     Active Substance: RIVAROXABAN
  4. LEVAQUIN [Suspect]
     Active Substance: LEVOFLOXACIN
  5. MACRODANTIN [Suspect]
     Active Substance: NITROFURANTOIN
  6. AUGMENTIN [Suspect]
     Active Substance: AMOXICILLIN\CLAVULANATE POTASSIUM
  7. FLOXIN [Suspect]
     Active Substance: OFLOXACIN
  8. OXYCODONE [Suspect]
     Active Substance: OXYCODONE
  9. AMIODARONE HCL [Suspect]
     Active Substance: AMIODARONE HYDROCHLORIDE

REACTIONS (1)
  - Drug hypersensitivity [Unknown]
